FAERS Safety Report 6072767-0 (Version None)
Quarter: 2009Q1

REPORT INFORMATION
  Report Type: 
  Country: None (occurrence: None)
  Receive Date: 20090210
  Receipt Date: 20090129
  Transmission Date: 20090719
  Serious: Yes (Hospitalization)
  Sender: FDA-Public Use
  Company Number: US-ELI_LILLY_AND_COMPANY-US200901005259

PATIENT
  Sex: Male

DRUGS (1)
  1. CYMBALTA [Suspect]
     Indication: PAIN
     Dosage: 20 MG, DAILY (1/D)
     Dates: start: 20060601, end: 20080701

REACTIONS (6)
  - BLOOD PRESSURE ABNORMAL [None]
  - DIZZINESS [None]
  - FALL [None]
  - HALLUCINATION [None]
  - TREMOR [None]
  - TRISMUS [None]
